FAERS Safety Report 23728554 (Version 1)
Quarter: 2024Q2

REPORT INFORMATION
  Report Type: Spontaneous
  Country: US (occurrence: US)
  Receive Date: 20240410
  Receipt Date: 20240410
  Transmission Date: 20240715
  Serious: No
  Sender: FDA-Public Use
  Company Number: US-NEBO-PC014191

PATIENT
  Age: 37 Year
  Weight: 55.3 kg

DRUGS (1)
  1. MONOFERRIC [Suspect]
     Active Substance: FERRIC DERISOMALTOSE
     Indication: Product used for unknown indication
     Route: 050
     Dates: start: 20240401, end: 20240401

REACTIONS (7)
  - Palpitations [Unknown]
  - Chest discomfort [Unknown]
  - Dyspnoea [Unknown]
  - Tachycardia [Recovering/Resolving]
  - Oxygen saturation decreased [Recovered/Resolved]
  - Flushing [Unknown]
  - Nausea [Unknown]

NARRATIVE: CASE EVENT DATE: 20240401
